FAERS Safety Report 6309260-3 (Version None)
Quarter: 2009Q3

REPORT INFORMATION
  Report Type: 
  Country: None (occurrence: None)
  Receive Date: 20090811
  Receipt Date: 20090730
  Transmission Date: 20100115
  Serious: Yes (Other)
  Sender: FDA-Public Use
  Company Number: 2009-03079

PATIENT
  Age: 67 Year
  Sex: Male
  Weight: 73 kg

DRUGS (3)
  1. VELCADE [Suspect]
     Indication: MULTIPLE MYELOMA
     Dosage: 1.3 MG/M2, INTRAVENOUS
     Route: 042
     Dates: start: 20080208, end: 20080418
  2. DEXAMETHASONE [Concomitant]
  3. NICARDIPINE HCL [Concomitant]

REACTIONS (6)
  - ASTHENIA [None]
  - AUTONOMIC NERVOUS SYSTEM IMBALANCE [None]
  - DRY SKIN [None]
  - HYPERHIDROSIS [None]
  - PERIPHERAL SENSORY NEUROPATHY [None]
  - STEM CELL TRANSPLANT [None]
